FAERS Safety Report 23752415 (Version 1)
Quarter: 2024Q2

REPORT INFORMATION
  Report Type: Spontaneous
  Country: CN (occurrence: CN)
  Receive Date: 20240417
  Receipt Date: 20240417
  Transmission Date: 20240716
  Serious: Yes (Other)
  Sender: FDA-Public Use
  Company Number: CN-SA-SAC20240416000002

PATIENT
  Age: 86 Year
  Sex: Female
  Weight: 45 kg

DRUGS (3)
  1. CLOPIDOGREL BISULFATE [Suspect]
     Active Substance: CLOPIDOGREL BISULFATE
     Indication: Thrombosis
     Dosage: 300 MG; 1X
     Route: 048
     Dates: start: 20240325, end: 20240325
  2. HEPARIN SODIUM [Concomitant]
     Active Substance: HEPARIN SODIUM
     Indication: Thrombosis prophylaxis
     Dosage: 5000 IU; BID
     Route: 058
     Dates: start: 20240222, end: 20240325
  3. INDOBUFEN [Concomitant]
     Active Substance: INDOBUFEN
     Indication: Thrombosis prophylaxis
     Dosage: 0.2 G; BID
     Route: 048
     Dates: start: 20240312, end: 20240325

REACTIONS (3)
  - Discomfort [Recovering/Resolving]
  - Haematemesis [Recovering/Resolving]
  - Haemoptysis [Recovering/Resolving]

NARRATIVE: CASE EVENT DATE: 20240325
